FAERS Safety Report 5443286-7 (Version None)
Quarter: 2007Q3

REPORT INFORMATION
  Report Type: 
  Country: None (occurrence: None)
  Receive Date: 20070830
  Receipt Date: 20070820
  Transmission Date: 20080115
  Serious: Yes (Life-Threatening, Hospitalization, Other)
  Sender: FDA-Public Use
  Company Number: DSA_30493_2007

PATIENT
  Age: 51 Year
  Sex: Male

DRUGS (2)
  1. TIAZAC [Suspect]
     Indication: DRUG USE FOR UNKNOWN INDICATION
     Dosage: (180 MG QD)
  2. LITHIUM CARBONATE [Concomitant]

REACTIONS (1)
  - DRUG TOXICITY [None]
